FAERS Safety Report 9238233 (Version 2)
Quarter: 2014Q1

REPORT INFORMATION
  Report Type: Spontaneous
  Country: IT (occurrence: IT)
  Receive Date: 20130418
  Receipt Date: 20140224
  Transmission Date: 20141002
  Serious: Yes (Other)
  Sender: FDA-Public Use
  Company Number: PHHY2013IT036515

PATIENT
  Sex: Female

DRUGS (1)
  1. ZOMETA [Suspect]
     Indication: METASTASES TO BONE
     Dosage: ONE POSOLOGIC UNIT MONTHLY
     Route: 042
     Dates: start: 20100301, end: 20120301

REACTIONS (4)
  - Osteonecrosis of jaw [Unknown]
  - Abscess jaw [Unknown]
  - Exposed bone in jaw [Unknown]
  - Purulent discharge [Unknown]
